FAERS Safety Report 4268113-5 (Version None)
Quarter: 2004Q1

REPORT INFORMATION
  Report Type: 
  Country: None (occurrence: None)
  Receive Date: 20040109
  Receipt Date: 20040109
  Transmission Date: 20041129
  Serious: Yes (Hospitalization, Disabling)
  Sender: FDA-Public Use
  Company Number: None

PATIENT
  Age: 26 Year
  Sex: Male
  Weight: 74.8435 kg

DRUGS (1)
  1. LARIAM [Suspect]
     Dosage: 1 WEEK ORAL
     Route: 048

REACTIONS (5)
  - ANXIETY [None]
  - CONVULSION [None]
  - DEPRESSION [None]
  - NIGHTMARE [None]
  - TREMOR [None]
